FAERS Safety Report 5075465-5 (Version None)
Quarter: 2006Q3

REPORT INFORMATION
  Report Type: 
  Country: None (occurrence: None)
  Receive Date: 20060809
  Receipt Date: 20060803
  Transmission Date: 20061208
  Serious: Yes (Hospitalization)
  Sender: FDA-Public Use
  Company Number: PHRM2006FR02277

PATIENT
  Age: 80 Year
  Sex: Female

DRUGS (5)
  1. LASILIX [Suspect]
     Route: 042
     Dates: start: 20060628
  2. LASILIX [Suspect]
     Dosage: 60 MG/DAY
     Route: 048
     Dates: start: 20060628, end: 20060630
  3. ISOBAR [Concomitant]
     Route: 048
  4. VASTAREL [Concomitant]
     Dosage: 70 MG/DAY
     Route: 048
  5. TAREG [Suspect]
     Indication: HYPERTENSION
     Dosage: 40 MG, QD
     Route: 048
     Dates: start: 20060628, end: 20060630

REACTIONS (5)
  - BLOOD CREATINE PHOSPHOKINASE INCREASED [None]
  - BLOOD CREATININE INCREASED [None]
  - DRUG INTERACTION [None]
  - RENAL FAILURE ACUTE [None]
  - RHABDOMYOLYSIS [None]
